FAERS Safety Report 10084994 (Version 1)
Quarter: 2014Q2

REPORT INFORMATION
  Report Type: Spontaneous
  Country: GB (occurrence: GB)
  Receive Date: 20140417
  Receipt Date: 20140417
  Transmission Date: 20141212
  Serious: Yes (Hospitalization)
  Sender: FDA-Public Use
  Company Number: GB-VERTEX PHARMACEUTICALS INC-2014-001966

PATIENT
  Sex: Male

DRUGS (7)
  1. INCIVO [Suspect]
     Indication: HEPATITIS C
     Dosage: 1125 MG, QD
     Route: 048
     Dates: start: 20131209, end: 20140225
  2. PEGINTERFERON ALFA-2A [Suspect]
     Indication: HEPATITIS C
     Dosage: 180 ?G, QW
     Route: 058
     Dates: start: 20131014, end: 20140225
  3. REBETOL [Suspect]
     Indication: HEPATITIS C
     Dosage: 1000 MG, QD
     Route: 048
     Dates: start: 20131014, end: 20140225
  4. ZOPICLONE [Concomitant]
     Indication: SEDATIVE THERAPY
     Dosage: 7.5 MG, QD
     Route: 048
     Dates: end: 20140225
  5. VENLAFAXINE [Concomitant]
     Indication: ANTIDEPRESSANT THERAPY
     Dosage: 375 MG, QD
     Route: 048
  6. OLANZAPINE [Concomitant]
     Indication: PSYCHOTIC DISORDER
     Dosage: 20 MG, QD
  7. METHADONE [Concomitant]
     Indication: DRUG ABUSE
     Dosage: 80 ML, QD
     Route: 048

REACTIONS (2)
  - Pneumonia [Recovered/Resolved]
  - Bacteraemia [Unknown]
